FAERS Safety Report 12612640 (Version 1)
Quarter: 2016Q3

REPORT INFORMATION
  Report Type: Spontaneous
  Country: US (occurrence: US)
  Receive Date: 20160801
  Receipt Date: 20160801
  Transmission Date: 20161109
  Serious: No
  Sender: FDA-Public Use
  Company Number: US-TEIKOKU PHARMA USA-TPU2016-00514

PATIENT
  Age: 33 Year
  Sex: Male
  Weight: 90.8 kg

DRUGS (3)
  1. LIDOCAINE PATCH [Suspect]
     Active Substance: LIDOCAINE
     Indication: RADICULOPATHY
  2. LIDOCAINE PATCH [Suspect]
     Active Substance: LIDOCAINE
     Indication: INTERVERTEBRAL DISC PROTRUSION
     Dosage: 1 PATCH ON LEFT SHOULDER, 1 PATCH ON RIGHT SHOULDER, 1 PATCH ON LOWER BACK. FOR 12 HOURS
     Route: 061
     Dates: start: 2014, end: 201606
  3. LIDOCAINE PATCH [Suspect]
     Active Substance: LIDOCAINE
     Indication: MUSCLE SPASMS
     Route: 061
     Dates: start: 201606

REACTIONS (2)
  - Vomiting [Recovered/Resolved]
  - Anaphylactic shock [Recovered/Resolved]

NARRATIVE: CASE EVENT DATE: 20160610
